FAERS Safety Report 21973694 (Version 1)
Quarter: 2023Q1

REPORT INFORMATION
  Report Type: Report from Study
  Country: ZA (occurrence: ZA)
  Receive Date: 20230209
  Receipt Date: 20230209
  Transmission Date: 20230418
  Serious: Yes (Other)
  Sender: FDA-Public Use
  Company Number: ZA-TAKEDA-2022TUS086345

PATIENT
  Age: 75 Year
  Sex: Male

DRUGS (6)
  1. VEDOLIZUMAB [Suspect]
     Active Substance: VEDOLIZUMAB
     Indication: Colitis ulcerative
     Dosage: 300 MILLIGRAM
     Route: 042
     Dates: start: 20221019
  2. BUDESONIDE [Concomitant]
     Active Substance: BUDESONIDE
     Dosage: UNK UNK, QD
  3. ECOTRIN [Concomitant]
     Active Substance: ASPIRIN
     Dosage: UNK
  4. ROSUVASTATIN CALCIUM [Concomitant]
     Active Substance: ROSUVASTATIN CALCIUM
     Dosage: UNK
  5. EXFORGE [Concomitant]
     Active Substance: AMLODIPINE BESYLATE\VALSARTAN
     Dosage: UNK
  6. Pantocid [Concomitant]
     Dosage: UNK

REACTIONS (4)
  - Colitis ulcerative [Unknown]
  - Mucous stools [Unknown]
  - Abnormal faeces [Unknown]
  - Diarrhoea [Unknown]
